FAERS Safety Report 20420315 (Version 1)
Quarter: 2022Q1

REPORT INFORMATION
  Report Type: Spontaneous
  Country: US (occurrence: US)
  Receive Date: 20220203
  Receipt Date: 20220203
  Transmission Date: 20220423
  Serious: Yes (Other)
  Sender: FDA-Public Use
  Company Number: US-AVET LIFESCIENCES LTD-2022-AVET-000010

PATIENT
  Age: 76 Year
  Sex: Female

DRUGS (29)
  1. BUPROPION HYDROCHLORIDE [Suspect]
     Active Substance: BUPROPION HYDROCHLORIDE
     Indication: Depression
  2. VENLAFAXINE HYDROCHLORIDE [Suspect]
     Active Substance: VENLAFAXINE HYDROCHLORIDE
     Indication: Depression
  3. SERTRALINE HYDROCHLORIDE [Suspect]
     Active Substance: SERTRALINE HYDROCHLORIDE
     Indication: Depression
     Dosage: 100 MILLIGRAM, QD
  4. SERTRALINE HYDROCHLORIDE [Suspect]
     Active Substance: SERTRALINE HYDROCHLORIDE
     Indication: Generalised anxiety disorder
  5. RISPERIDONE [Suspect]
     Active Substance: RISPERIDONE
     Indication: Depression
  6. ESCITALOPRAM [Suspect]
     Active Substance: ESCITALOPRAM OXALATE
     Indication: Depression
  7. DULOXETINE [Suspect]
     Active Substance: DULOXETINE
     Indication: Depression
     Dosage: 30 MILLIGRAM, QD
  8. DULOXETINE [Suspect]
     Active Substance: DULOXETINE
     Dosage: 60 MILLIGRAM, QD
  9. QUETIAPINE [Suspect]
     Active Substance: QUETIAPINE
     Indication: Depression
  10. ACETAMINOPHEN [Concomitant]
     Active Substance: ACETAMINOPHEN
  11. BISACODYL [Concomitant]
     Active Substance: BISACODYL
     Route: 054
  12. CLONAZEPAM [Concomitant]
     Active Substance: CLONAZEPAM
  13. DIAZEPAM [Concomitant]
     Active Substance: DIAZEPAM
  14. FAMOTIDINE [Concomitant]
     Active Substance: FAMOTIDINE
  15. GABAPENTIN [Concomitant]
     Active Substance: GABAPENTIN
  16. LIDOCAINE [Concomitant]
     Active Substance: LIDOCAINE
     Route: 062
  17. LORAZEPAM [Concomitant]
     Active Substance: LORAZEPAM
  18. MAGNESIUM HYDROXIDE [Concomitant]
     Active Substance: MAGNESIUM HYDROXIDE
  19. OMEPRAZOLE [Concomitant]
     Active Substance: OMEPRAZOLE
  20. PANTOPRAZOLE [Concomitant]
     Active Substance: PANTOPRAZOLE
  21. RANITIDINE [Concomitant]
     Active Substance: RANITIDINE
  22. ROSUVASTATIN [Concomitant]
     Active Substance: ROSUVASTATIN
  23. SIMVASTATIN [Concomitant]
     Active Substance: SIMVASTATIN
  24. POLYETHYLENE GLYCOL [Concomitant]
     Active Substance: POLYETHYLENE GLYCOL
  25. SUMATRIPTAN [Concomitant]
     Active Substance: SUMATRIPTAN
  26. TIMOLOL [Concomitant]
     Active Substance: TIMOLOL
     Route: 047
  27. TRAZODONE [Concomitant]
     Active Substance: TRAZODONE HYDROCHLORIDE
  28. calcium carbonate/chocalciferol [Concomitant]
  29. DEXTROMETHORPHAN HYDROBROMIDE\QUINIDINE SULFATE [Concomitant]
     Active Substance: DEXTROMETHORPHAN HYDROBROMIDE\QUINIDINE SULFATE

REACTIONS (3)
  - Tremor [None]
  - Drug interaction [Unknown]
  - Drug metabolising enzyme decreased [Unknown]
